FAERS Safety Report 23289048 (Version 2)
Quarter: 2024Q1

REPORT INFORMATION
  Report Type: Spontaneous
  Country: US (occurrence: US)
  Receive Date: 20231212
  Receipt Date: 20240312
  Transmission Date: 20240410
  Serious: Yes (Hospitalization)
  Sender: FDA-Public Use
  Company Number: US-TEVA-VS-3135028

PATIENT
  Age: 57 Year
  Sex: Male

DRUGS (5)
  1. TESTOSTERONE [Suspect]
     Active Substance: TESTOSTERONE
     Indication: Product used for unknown indication
     Route: 030
  2. TESTOSTERONE [Suspect]
     Active Substance: TESTOSTERONE
     Indication: Product used for unknown indication
     Route: 048
  3. Immunoglobulin [Concomitant]
     Indication: Antiphospholipid syndrome
     Route: 042
  4. COSYNTROPIN [Concomitant]
     Active Substance: COSYNTROPIN
     Indication: Diagnostic procedure
     Route: 065
  5. WARFARIN [Concomitant]
     Active Substance: WARFARIN
     Indication: Thrombosis
     Route: 065

REACTIONS (4)
  - Renal vein thrombosis [Recovering/Resolving]
  - Adrenal haemorrhage [Recovering/Resolving]
  - Primary adrenal insufficiency [Recovering/Resolving]
  - Intentional product misuse [Unknown]
